FAERS Safety Report 20405589 (Version 1)
Quarter: 2022Q1

REPORT INFORMATION
  Report Type: Spontaneous
  Country: DE (occurrence: DE)
  Receive Date: 20220131
  Receipt Date: 20220131
  Transmission Date: 20220423
  Serious: Yes (Death, Hospitalization, Other)
  Sender: FDA-Public Use
  Company Number: None

PATIENT
  Age: 79 Year
  Sex: Female
  Weight: 70 kg

DRUGS (7)
  1. IBUPROFEN [Suspect]
     Active Substance: IBUPROFEN
     Indication: Arthralgia
     Dosage: 600 MG 4X1/2400 MG/TAG FUER EINE WOCHE
     Route: 048
     Dates: start: 20180404, end: 20180411
  2. LEVOTHYROXINE [Concomitant]
     Active Substance: LEVOTHYROXINE
     Indication: Product used for unknown indication
     Dosage: 150 UG, QD
     Route: 065
     Dates: start: 2016
  3. LEVOTHYROXINE [Concomitant]
     Active Substance: LEVOTHYROXINE
     Dosage: 75 UG (1-0-0)
     Route: 065
     Dates: end: 2018
  4. ORTOTON [Concomitant]
     Indication: Arthralgia
     Route: 065
  5. TRAMADOL [Concomitant]
     Active Substance: TRAMADOL
     Indication: Product used for unknown indication
     Route: 065
  6. DEXKETOPROFEN [Concomitant]
     Active Substance: DEXKETOPROFEN
     Indication: Product used for unknown indication
     Route: 065
  7. DEXA [Concomitant]
     Indication: Product used for unknown indication
     Route: 030

REACTIONS (16)
  - Pancytopenia [Fatal]
  - Aplastic anaemia [Fatal]
  - Thrombocytopenia [Fatal]
  - Bone marrow failure [Fatal]
  - Petechiae [Unknown]
  - Dizziness [Unknown]
  - Jaundice [Unknown]
  - Haematochezia [Unknown]
  - Atypical pneumonia [Unknown]
  - Listless [Unknown]
  - Epistaxis [Unknown]
  - Oedema peripheral [Unknown]
  - Varicella virus test positive [Unknown]
  - Vitamin B12 deficiency [Unknown]
  - Lung infiltration [Unknown]
  - Dyspnoea exertional [Unknown]

NARRATIVE: CASE EVENT DATE: 20180101
